FAERS Safety Report 23816254 (Version 2)
Quarter: 2024Q4

REPORT INFORMATION
  Report Type: Report from Study
  Country: US (occurrence: US)
  Receive Date: 20240503
  Receipt Date: 20241031
  Transmission Date: 20250115
  Serious: Yes (Hospitalization)
  Sender: MYLAN
  Company Number: US-MYLANLABS-2024M1039786

PATIENT
  Sex: Male
  Weight: 74.84 kg

DRUGS (2)
  1. CLOZAPINE [Suspect]
     Active Substance: CLOZAPINE
     Indication: Mental disorder
     Dosage: 300 MILLIGRAM, HS (QHS(EVERY NIGHT AT BEDTIME))
     Route: 065
  2. CLOZAPINE [Suspect]
     Active Substance: CLOZAPINE
     Dosage: UNK
     Route: 065
     Dates: start: 20240301

REACTIONS (6)
  - Suicide attempt [Unknown]
  - Hallucination, auditory [Unknown]
  - Fracture [Unknown]
  - Psychotic disorder [Recovered/Resolved]
  - Blood pressure increased [Unknown]
  - Off label use [Unknown]
